FAERS Safety Report 6056509-0 (Version None)
Quarter: 2009Q1

REPORT INFORMATION
  Report Type: 
  Country: None (occurrence: None)
  Receive Date: 20090121
  Receipt Date: 20080327
  Transmission Date: 20090719
  Serious: Yes (Other)
  Sender: FDA-Public Use
  Company Number: HQWYE375921OCT03

PATIENT
  Age: 57 Year
  Sex: Female

DRUGS (4)
  1. PREMPRO [Suspect]
     Dosage: UNSPECIFIED DOSAGE FOR A NUMBER OF YEARS, ORAL
     Route: 048
  2. CYCRIN [Suspect]
  3. PREMARIN [Suspect]
     Dosage: UNSPECIFIED DOSAGE FOR A NUMBER OF YEARS., ORAL
     Route: 048
  4. PROVERA [Suspect]
     Dosage: UNSPECIFIED DOAGE, ORAL
     Route: 048

REACTIONS (1)
  - BREAST CANCER [None]
